FAERS Safety Report 26213946 (Version 1)
Quarter: 2025Q4

REPORT INFORMATION
  Report Type: Spontaneous
  Country: CN (occurrence: CN)
  Receive Date: 20251230
  Receipt Date: 20251230
  Transmission Date: 20260118
  Serious: Yes (Hospitalization)
  Sender: ELI LILLY AND COMPANY
  Company Number: CN-Merck Healthcare KGaA-2025065748

PATIENT
  Age: 64 Year
  Sex: Male

DRUGS (4)
  1. ERBITUX [Suspect]
     Active Substance: CETUXIMAB
     Indication: Oropharyngeal cancer
     Dosage: 503 MG, UNKNOWN
     Route: 041
     Dates: start: 20250504, end: 20250504
  2. PACLITAXEL [Suspect]
     Active Substance: PACLITAXEL
     Indication: Oropharyngeal cancer
     Dosage: 30 MG, UNKNOWN
     Route: 041
     Dates: start: 20250502, end: 20250502
  3. PACLITAXEL [Suspect]
     Active Substance: PACLITAXEL
     Dosage: 242 MG, UNKNOWN
     Route: 041
     Dates: start: 20250502, end: 20250502
  4. CISPLATIN [Suspect]
     Active Substance: CISPLATIN
     Indication: Oropharyngeal cancer
     Dosage: 60 MG, UNKNOWN
     Route: 041
     Dates: start: 20250502, end: 20250504

REACTIONS (1)
  - Platelet count decreased [Recovering/Resolving]

NARRATIVE: CASE EVENT DATE: 20250512
